FAERS Safety Report 24788594 (Version 1)
Quarter: 2024Q4

REPORT INFORMATION
  Report Type: Spontaneous
  Country: PT (occurrence: PT)
  Receive Date: 20241230
  Receipt Date: 20241230
  Transmission Date: 20250115
  Serious: Yes (Other)
  Sender: ACCORD
  Company Number: PT-MLMSERVICE-20241211-PI294244-00101-1

PATIENT
  Age: 33 Year
  Sex: Female

DRUGS (10)
  1. CISPLATIN [Suspect]
     Active Substance: CISPLATIN
     Indication: Neuroendocrine carcinoma of the cervix
     Dosage: 75 MG/M2 (DAYS 1) EVERY 21 DAYS
  2. ETOPOSIDE [Suspect]
     Active Substance: ETOPOSIDE
     Indication: Neuroendocrine carcinoma of the cervix
     Dosage: 100 MG/M2 (DAYS 1, 2, AND 3) EVERY 21 DAYS; COMPLETED A TOTAL OF 4 CYCLES
  3. ETOPOSIDE [Suspect]
     Active Substance: ETOPOSIDE
     Indication: Metastases to breast
     Dosage: 100 MG/M2 (DAYS 1, 2, AND 3) EVERY 21 DAYS; COMPLETED A TOTAL OF 4 CYCLES
  4. ETOPOSIDE [Suspect]
     Active Substance: ETOPOSIDE
     Indication: Metastases to pancreas
     Dosage: 100 MG/M2 (DAYS 1, 2, AND 3) EVERY 21 DAYS; COMPLETED A TOTAL OF 4 CYCLES
  5. ETOPOSIDE [Suspect]
     Active Substance: ETOPOSIDE
     Indication: Metastases to ovary
     Dosage: 100 MG/M2 (DAYS 1, 2, AND 3) EVERY 21 DAYS; COMPLETED A TOTAL OF 4 CYCLES
  6. ETOPOSIDE [Suspect]
     Active Substance: ETOPOSIDE
     Indication: Papilloma viral infection
     Dosage: 100 MG/M2 (DAYS 1, 2, AND 3) EVERY 21 DAYS; COMPLETED A TOTAL OF 4 CYCLES
  7. CISPLATIN [Suspect]
     Active Substance: CISPLATIN
     Indication: Papilloma viral infection
     Dosage: 75 MG/M2 (DAYS 1) EVERY 21 DAYS
  8. CISPLATIN [Suspect]
     Active Substance: CISPLATIN
     Indication: Metastases to breast
     Dosage: 75 MG/M2 (DAYS 1) EVERY 21 DAYS
  9. CISPLATIN [Suspect]
     Active Substance: CISPLATIN
     Indication: Metastases to pancreas
     Dosage: 75 MG/M2 (DAYS 1) EVERY 21 DAYS
  10. CISPLATIN [Suspect]
     Active Substance: CISPLATIN
     Indication: Metastases to ovary
     Dosage: 75 MG/M2 (DAYS 1) EVERY 21 DAYS

REACTIONS (2)
  - Anaemia [Unknown]
  - Off label use [Unknown]
